FAERS Safety Report 6314276 (Version 3)
Quarter: 2020Q3

REPORT INFORMATION
  Report Type: Report from Study
  Country: US (occurrence: US)
  Receive Date: 20070501
  Receipt Date: 20090324
  Transmission Date: 20201105
  Serious: Yes (Hospitalization)
  Sender: FDA-Public Use
  Company Number: HQWYE846425APR07

PATIENT
  Age: 66 Year
  Sex: Male
  Weight: 61.2 kg

DRUGS (2)
  1. SUNITINIB\TEMSIROLIMUS [Suspect]
     Active Substance: SUNITINIB\TEMSIROLIMUS
     Indication: RENAL CELL CARCINOMA
     Route: 048
     Dates: start: 20070405, end: 20070423
  2. TEMSIROLIMUS. [Suspect]
     Active Substance: TEMSIROLIMUS
     Indication: RENAL CELL CARCINOMA
     Route: 042
     Dates: start: 20070405, end: 20070419

REACTIONS (2)
  - Cellulitis [Recovered/Resolved]
  - Gout [Recovered/Resolved]

NARRATIVE: CASE EVENT DATE: 20070423
